FAERS Safety Report 5273139-9 (Version None)
Quarter: 2007Q1

REPORT INFORMATION
  Report Type: 
  Country: None (occurrence: None)
  Receive Date: 20070322
  Receipt Date: 20070314
  Transmission Date: 20070707
  Serious: Yes (Hospitalization)
  Sender: FDA-Public Use
  Company Number: FR-SANOFI-SYNTHELABO-A02200700763

PATIENT
  Age: 55 Year
  Sex: Female

DRUGS (1)
  1. ELOXATIN [Suspect]
     Indication: PERITONEAL NEOPLASM
     Route: 033
     Dates: start: 20060123, end: 20060123

REACTIONS (1)
  - PERITONEAL HAEMORRHAGE [None]
